FAERS Safety Report 5755605-2 (Version None)
Quarter: 2008Q2

REPORT INFORMATION
  Report Type: 
  Country: None (occurrence: None)
  Receive Date: 20080602
  Receipt Date: 20080527
  Transmission Date: 20081010
  Serious: Yes (Other)
  Sender: FDA-Public Use
  Company Number: US-JNJFOC-20080505893

PATIENT
  Age: 56 Year
  Sex: Female
  Weight: 58.97 kg

DRUGS (2)
  1. IMODIUM A-D CREAMY MINT [Suspect]
     Route: 048
  2. IMODIUM A-D CREAMY MINT [Suspect]
     Indication: DIARRHOEA
     Route: 048

REACTIONS (1)
  - HYPERSENSITIVITY [None]
